FAERS Safety Report 5090890-4 (Version None)
Quarter: 2006Q3

REPORT INFORMATION
  Report Type: 
  Country: None (occurrence: None)
  Receive Date: 20060823
  Receipt Date: 20060808
  Transmission Date: 20061208
  Serious: Yes (Other)
  Sender: FDA-Public Use
  Company Number: TUK2006A00051

PATIENT
  Sex: Male

DRUGS (3)
  1. ACTOS [Suspect]
  2. INSULIN [Concomitant]
  3. METFORMIN (METFORMIN) [Concomitant]

REACTIONS (1)
  - VISUAL DISTURBANCE [None]
